FAERS Safety Report 23046461 (Version 2)
Quarter: 2023Q4

REPORT INFORMATION
  Report Type: Spontaneous
  Country: CA (occurrence: CA)
  Receive Date: 20231009
  Receipt Date: 20231026
  Transmission Date: 20240110
  Serious: Yes (Other)
  Sender: FDA-Public Use
  Company Number: CA-PFIZER INC-202300314580

PATIENT
  Age: 81 Year
  Sex: Female

DRUGS (3)
  1. METHOTREXATE SODIUM [Suspect]
     Active Substance: METHOTREXATE SODIUM
     Dosage: 15 MG
     Route: 048
     Dates: start: 2000, end: 2009
  2. HUMIRA [Suspect]
     Active Substance: ADALIMUMAB
     Dosage: 40 MG, EVERY 2 WEEKS
     Route: 058
     Dates: start: 200602, end: 2009
  3. REMICADE [Concomitant]
     Active Substance: INFLIXIMAB
     Dosage: 3 MG/KG
     Dates: start: 2000

REACTIONS (1)
  - Colon cancer [Unknown]

NARRATIVE: CASE EVENT DATE: 20090101
